FAERS Safety Report 8603118-2 (Version None)
Quarter: 2012Q3

REPORT INFORMATION
  Report Type: 
  Country: None (occurrence: None)
  Receive Date: 20120817
  Receipt Date: 20120228
  Transmission Date: 20120928
  Serious: No
  Sender: FDA-Public Use
  Company Number: US-GLAXOSMITHKLINE-A0967821A

PATIENT
  Age: 37 Year
  Sex: Female

DRUGS (1)
  1. TAGAMET [Suspect]
     Indication: DYSPEPSIA
     Route: 048
     Dates: start: 20120102

REACTIONS (1)
  - DRUG INEFFECTIVE [None]
